FAERS Safety Report 6440827-8 (Version None)
Quarter: 2009Q4

REPORT INFORMATION
  Report Type: 
  Country: None (occurrence: None)
  Receive Date: 20091116
  Receipt Date: 20091103
  Transmission Date: 20100525
  Serious: No
  Sender: FDA-Public Use
  Company Number: US-B.I. PHARMACEUTICALS,INC./RIDGEFIELD-2009-BP-12878BP

PATIENT

DRUGS (2)
  1. VIRAMUNE [Suspect]
     Route: 048
  2. TRUVADA [Concomitant]

REACTIONS (2)
  - CD4 LYMPHOCYTES INCREASED [None]
  - VIRAL LOAD INCREASED [None]
